FAERS Safety Report 9836927 (Version 4)
Quarter: 2019Q4

REPORT INFORMATION
  Report Type: Spontaneous
  Country: US (occurrence: US)
  Receive Date: 20140123
  Receipt Date: 20191226
  Transmission Date: 20200122
  Serious: No
  Sender: FDA-Public Use
  Company Number: US-PFIZER INC-2014017541

PATIENT
  Age: 83 Year
  Sex: Female

DRUGS (10)
  1. XELJANZ [Suspect]
     Active Substance: TOFACITINIB CITRATE
     Dosage: 10 MG, 1X/DAY
  2. XELJANZ [Suspect]
     Active Substance: TOFACITINIB CITRATE
     Dosage: 5 MG, UNK (QD ALT WITH 5 MG BID/ALTERNATING ONCE A DAY THEN TWICE A DAY EVERY OTHER DAY)
  3. XELJANZ [Suspect]
     Active Substance: TOFACITINIB CITRATE
     Dosage: 5 MG, DAILY(TAKING 1 TABLET DAILY ALTERNATING BY 1 TABLET TWICE DAILY)
     Route: 048
  4. XELJANZ [Suspect]
     Active Substance: TOFACITINIB CITRATE
     Dosage: 5 MG, ALTERNATE DAY(TAKING 1 TABLET DAILY ALTERNATING BY 1 TABLET TWICE DAILY)
     Route: 048
  5. XELJANZ [Suspect]
     Active Substance: TOFACITINIB CITRATE
     Indication: RHEUMATOID ARTHRITIS
     Dosage: 2 DF, DAILY
     Dates: start: 20140102
  6. XELJANZ [Suspect]
     Active Substance: TOFACITINIB CITRATE
     Dosage: 5 MG, 2X/DAY (ALTERNATE WITH 5 MG PO QD)
     Route: 048
  7. XELJANZ [Suspect]
     Active Substance: TOFACITINIB CITRATE
     Dosage: UNK
     Dates: start: 20140114, end: 20140117
  8. XELJANZ [Suspect]
     Active Substance: TOFACITINIB CITRATE
     Dosage: 5 MG, UNK (ONE QD ALTERNATING WITH 2 QD)
  9. XELJANZ [Suspect]
     Active Substance: TOFACITINIB CITRATE
     Dosage: 5 MG, 1X/DAY
  10. XELJANZ [Suspect]
     Active Substance: TOFACITINIB CITRATE
     Dosage: 5 MG, 1X/DAY (ALTERNATE WITH 5 MG BID)
     Route: 048

REACTIONS (4)
  - Off label use [Unknown]
  - Nausea [Unknown]
  - Malaise [Unknown]
  - Dizziness [Unknown]
